FAERS Safety Report 13156804 (Version 1)
Quarter: 2017Q1

REPORT INFORMATION
  Report Type: Spontaneous
  Country: ES (occurrence: ES)
  Receive Date: 20170126
  Receipt Date: 20170126
  Transmission Date: 20170428
  Serious: Yes (Other)
  Sender: FDA-Public Use
  Company Number: ES-AMGEN-ESPSP2017011529

PATIENT
  Age: 56 Year
  Sex: Female

DRUGS (1)
  1. PROLIA [Suspect]
     Active Substance: DENOSUMAB
     Indication: OSTEOPOROSIS
     Dosage: 60 MG, QD
     Route: 058
     Dates: start: 20131125

REACTIONS (1)
  - Blood parathyroid hormone increased [Unknown]

NARRATIVE: CASE EVENT DATE: 201509
